FAERS Safety Report 11552313 (Version 1)
Quarter: 2015Q3

REPORT INFORMATION
  Report Type: Spontaneous
  Country: US (occurrence: None)
  Receive Date: 20150924
  Receipt Date: 20150924
  Transmission Date: 20151125
  Serious: Yes (Death, Life-Threatening, Hospitalization, Disabling)
  Sender: FDA-Public Use
  Company Number: None

PATIENT

DRUGS (1)
  1. LIQUID NITROGEN [Suspect]
     Active Substance: NITROGEN

REACTIONS (1)
  - No adverse event [None]

NARRATIVE: CASE EVENT DATE: 20150922
